FAERS Safety Report 8791041 (Version 1)
Quarter: 2012Q4

REPORT INFORMATION
  Report Type: Spontaneous
  Country: DE (occurrence: None)
  Receive Date: 20120910
  Receipt Date: 20120910
  Transmission Date: 20130627
  Serious: Yes (Hospitalization, Other)
  Sender: FDA-Public Use
  Company Number: AUR-APL-2012-03868

PATIENT
  Age: 20 Day
  Sex: Female
  Weight: 2.45 kg

DRUGS (1)
  1. RAMIPRIL (RAMIPRIL) [Suspect]
     Indication: HYPERTENSION
     Route: 063
     Dates: start: 20120407, end: 20120428

REACTIONS (3)
  - Weight gain poor [None]
  - Aphthous stomatitis [None]
  - Maternal drugs affecting foetus [None]
